FAERS Safety Report 19930855 (Version 1)
Quarter: 2021Q4

REPORT INFORMATION
  Report Type: Spontaneous
  Country: US (occurrence: US)
  Receive Date: 20211007
  Receipt Date: 20211007
  Transmission Date: 20220303
  Serious: Yes (Other)
  Sender: FDA-Public Use
  Company Number: US-009507513-2110USA000656

PATIENT
  Age: 88 Year
  Sex: Male

DRUGS (1)
  1. INVANZ [Suspect]
     Active Substance: ERTAPENEM SODIUM
     Dosage: UNK
     Dates: start: 202107

REACTIONS (5)
  - Hallucination [Not Recovered/Not Resolved]
  - COVID-19 [Unknown]
  - Malaise [Unknown]
  - Asthenia [Unknown]
  - Hypokinesia [Unknown]

NARRATIVE: CASE EVENT DATE: 20210701
